FAERS Safety Report 6588684-3 (Version None)
Quarter: 2010Q1

REPORT INFORMATION
  Report Type: 
  Country: None (occurrence: None)
  Receive Date: 20100218
  Receipt Date: 20100209
  Transmission Date: 20100710
  Serious: Yes (Other)
  Sender: FDA-Public Use
  Company Number: JP-EISAI INC.-E3810-02694-SPO-JP

PATIENT
  Sex: Female

DRUGS (5)
  1. PARIET (RABEPRAZOLE) [Suspect]
     Indication: GASTRIC ULCER
     Route: 048
     Dates: start: 20060921, end: 20061017
  2. APLACE [Suspect]
     Route: 048
     Dates: start: 20060921, end: 20061017
  3. VALTREX [Suspect]
     Route: 048
     Dates: start: 20061031, end: 20061105
  4. MAGTECT [Concomitant]
     Dosage: UNKNOWN
     Route: 048
     Dates: start: 20060922, end: 20061027
  5. MINOFIT [Concomitant]
     Dosage: UNKNOWN
     Route: 065
     Dates: end: 20061127

REACTIONS (2)
  - DRUG ERUPTION [None]
  - LIVER DISORDER [None]
